FAERS Safety Report 23234122 (Version 1)
Quarter: 2023Q4

REPORT INFORMATION
  Report Type: Spontaneous
  Country: US (occurrence: US)
  Receive Date: 20231128
  Receipt Date: 20231128
  Transmission Date: 20240110
  Serious: Yes (Other)
  Sender: FDA-Public Use
  Company Number: US-SANDOZ-SDZ2023US059088

PATIENT
  Age: 63 Year
  Sex: Male

DRUGS (3)
  1. TESTOSTERONE CYPIONATE [Suspect]
     Active Substance: TESTOSTERONE CYPIONATE
     Indication: Product used for unknown indication
     Dosage: 400 MG, Q2W
     Route: 065
  2. TESTOSTERONE [Suspect]
     Active Substance: TESTOSTERONE
     Indication: Product used for unknown indication
     Route: 048
  3. TESTOSTERONE PROPIONATE [Suspect]
     Active Substance: TESTOSTERONE PROPIONATE
     Indication: Product used for unknown indication
     Dosage: UNK, Q2W
     Route: 065

REACTIONS (1)
  - Drug abuse [Unknown]
